FAERS Safety Report 5876306-6 (Version None)
Quarter: 2008Q3

REPORT INFORMATION
  Report Type: 
  Country: None (occurrence: None)
  Receive Date: 20080910
  Receipt Date: 20080902
  Transmission Date: 20090109
  Serious: Yes (Hospitalization)
  Sender: FDA-Public Use
  Company Number: JP-ABBOTT-08P-087-0474694-00

PATIENT
  Age: 80 Year
  Sex: Male

DRUGS (11)
  1. LEUPROLIDE ACETATE [Suspect]
     Indication: PROSTATE CANCER STAGE II
     Route: 058
     Dates: start: 20060721, end: 20080411
  2. ETHYL ICOSAPENTATE [Concomitant]
     Indication: CEREBRAL INFARCTION
     Route: 048
     Dates: end: 20070116
  3. LOSARTAN POTASSIUM [Concomitant]
     Indication: HYPERTENSION
     Route: 048
  4. ACETYLSALICYLIC ACID SRT [Concomitant]
     Indication: MYOCARDIAL INFARCTION
     Route: 048
  5. TICLOPIDINE HYDROCHLORIDE [Concomitant]
     Indication: MYOCARDIAL INFARCTION
     Route: 048
  6. ACARBOSE [Concomitant]
     Indication: DIABETES MELLITUS
     Route: 048
  7. GLIMEPIRIDE [Concomitant]
     Indication: DIABETES MELLITUS
     Route: 048
  8. FUROSEMIDE [Concomitant]
     Indication: CARDIAC FAILURE
     Route: 048
  9. ISOSORBIDE MONONITRATE [Concomitant]
     Indication: MYOCARDIAL INFARCTION
     Route: 048
  10. CARVEDILOL [Concomitant]
     Indication: CARDIAC FAILURE
     Route: 048
  11. INSULIN HUMAN [Concomitant]
     Indication: DIABETES MELLITUS
     Route: 058
     Dates: start: 20070125

REACTIONS (1)
  - DECUBITUS ULCER [None]
